FAERS Safety Report 20919364 (Version 1)
Quarter: 2022Q2

REPORT INFORMATION
  Report Type: Report from Study
  Country: BR (occurrence: BR)
  Receive Date: 20220606
  Receipt Date: 20220606
  Transmission Date: 20220720
  Serious: Yes (Other)
  Sender: FDA-Public Use
  Company Number: BR-NOVARTISPH-NVSC2022BR129189

PATIENT
  Sex: Female

DRUGS (2)
  1. DIOVAN HCT [Suspect]
     Active Substance: HYDROCHLOROTHIAZIDE\VALSARTAN
     Indication: Product used for unknown indication
     Dosage: 12.5/80 MG, MANUFACTURING DATE: FEB 2021
     Route: 065
     Dates: start: 2006
  2. DIOVAN HCT [Suspect]
     Active Substance: HYDROCHLOROTHIAZIDE\VALSARTAN
     Dosage: UNK 12.5/80 MG + 1 TABLET OF 80 MG
     Route: 065

REACTIONS (2)
  - Hypertension [Not Recovered/Not Resolved]
  - Blood pressure fluctuation [Unknown]
